FAERS Safety Report 16624856 (Version 3)
Quarter: 2019Q3

REPORT INFORMATION
  Report Type: Spontaneous
  Country: US (occurrence: US)
  Receive Date: 20190724
  Receipt Date: 20190820
  Transmission Date: 20191004
  Serious: Yes (Other)
  Sender: FDA-Public Use
  Company Number: US-PFIZER INC-2019312244

PATIENT
  Age: 35 Year
  Sex: Male
  Weight: 136 kg

DRUGS (1)
  1. HEPARIN SODIUM. [Suspect]
     Active Substance: HEPARIN SODIUM
     Indication: PULMONARY EMBOLISM
     Dosage: 45 ML/HOUR
     Dates: start: 20190711, end: 20190716

REACTIONS (1)
  - Anti factor Xa activity decreased [Recovered/Resolved]

NARRATIVE: CASE EVENT DATE: 20190716
